FAERS Safety Report 24273351 (Version 1)
Quarter: 2024Q3

REPORT INFORMATION
  Report Type: Spontaneous
  Country: US (occurrence: US)
  Receive Date: 20240902
  Receipt Date: 20240902
  Transmission Date: 20241017
  Serious: No
  Sender: JOHNSON AND JOHNSON
  Company Number: US-JNJFOC-20240860611

PATIENT
  Sex: Male

DRUGS (4)
  1. MENS ROGAINE [Suspect]
     Active Substance: MINOXIDIL
     Indication: Alopecia
     Route: 061
  2. FISH OIL [Concomitant]
     Active Substance: FISH OIL
     Indication: Alopecia
     Route: 065
  3. COMPLEX B [VITAMIN B COMPLEX] [Concomitant]
     Indication: Alopecia
     Route: 065
  4. FISH OIL [Concomitant]
     Active Substance: FISH OIL
     Indication: Alopecia
     Route: 065

REACTIONS (1)
  - Drug ineffective [Unknown]
